FAERS Safety Report 13652422 (Version 1)
Quarter: 2017Q2

REPORT INFORMATION
  Report Type: Spontaneous
  Country: US (occurrence: US)
  Receive Date: 20170614
  Receipt Date: 20170614
  Transmission Date: 20170830
  Serious: No
  Sender: FDA-Public Use
  Company Number: US-ROCHE-1321094

PATIENT
  Age: 71 Year
  Sex: Male

DRUGS (4)
  1. ALBUTEROL INHALER [Concomitant]
     Active Substance: ALBUTEROL
  2. XELODA [Suspect]
     Active Substance: CAPECITABINE
     Indication: COLON CANCER
     Dosage: 14 DAYS ON, 7 DAYS OFF
     Route: 048
     Dates: start: 20130810
  3. XELODA [Suspect]
     Active Substance: CAPECITABINE
     Dosage: 500MG TABLET
     Route: 048
     Dates: start: 20130810
  4. ADVAIR HFA [Concomitant]
     Active Substance: FLUTICASONE PROPIONATE\SALMETEROL XINAFOATE

REACTIONS (6)
  - Palmar-plantar erythrodysaesthesia syndrome [Not Recovered/Not Resolved]
  - Fatigue [Not Recovered/Not Resolved]
  - Fatigue [Not Recovered/Not Resolved]
  - Neuropathy peripheral [Unknown]
  - Hypoaesthesia oral [Not Recovered/Not Resolved]
  - Hypoaesthesia [Not Recovered/Not Resolved]

NARRATIVE: CASE EVENT DATE: 20140128
